FAERS Safety Report 20173269 (Version 1)
Quarter: 2021Q4

REPORT INFORMATION
  Report Type: Spontaneous
  Country: US (occurrence: US)
  Receive Date: 20211211
  Receipt Date: 20211211
  Transmission Date: 20220303
  Serious: No
  Sender: FDA-Public Use
  Company Number: US-GLAXOSMITHKLINE-USCH2021087796

PATIENT
  Age: 84 Year
  Sex: Male

DRUGS (1)
  1. ADVIL DUAL ACTION WITH ACETAMINOPHEN [Suspect]
     Active Substance: ACETAMINOPHEN\IBUPROFEN
     Indication: Arthritis
     Dosage: UNK

REACTIONS (5)
  - Dizziness [Recovering/Resolving]
  - Nausea [Unknown]
  - Hypertension [Unknown]
  - Gait disturbance [Unknown]
  - Withdrawal syndrome [Unknown]

NARRATIVE: CASE EVENT DATE: 20211205
